FAERS Safety Report 8162845-4 (Version None)
Quarter: 2012Q1

REPORT INFORMATION
  Report Type: 
  Country: None (occurrence: None)
  Receive Date: 20120224
  Receipt Date: 20120210
  Transmission Date: 20120608
  Serious: Yes (Hospitalization)
  Sender: FDA-Public Use
  Company Number: BR-AMGEN-BRASP2012010597

PATIENT
  Age: 58 Year
  Sex: Female
  Weight: 55 kg

DRUGS (5)
  1. METHOTREXATE [Concomitant]
     Dosage: 10 MG, 2X/WEEK (4 TABLETS OF 2.5 MG, 2X/WEEK)
     Dates: start: 20030101
  2. ENBREL [Suspect]
     Indication: RHEUMATOID ARTHRITIS
     Dosage: 50 MG, ONCE WEEKLY
     Route: 058
     Dates: start: 20110618, end: 20111001
  3. ARAVA [Concomitant]
     Dosage: 20 MG, 1X/DAY
     Dates: start: 20110501
  4. DEFLAZACORT [Concomitant]
     Dosage: 6 MG, 2X/DAY
  5. FOLIC ACID [Concomitant]
     Dosage: 0.5 MG, ONCE WEEKLY

REACTIONS (6)
  - ASTHENIA [None]
  - HEADACHE [None]
  - OEDEMA PERIPHERAL [None]
  - BACTERIAL INFECTION [None]
  - ARTHRALGIA [None]
  - PYREXIA [None]
